FAERS Safety Report 4510801-7 (Version None)
Quarter: 2004Q4

REPORT INFORMATION
  Report Type: 
  Country: None (occurrence: None)
  Receive Date: 20041124
  Receipt Date: 20030605
  Transmission Date: 20050328
  Serious: Yes (Hospitalization, Disabling)
  Sender: FDA-Public Use
  Company Number: US-MERCK-0306USA00839

PATIENT
  Age: 41 Year
  Sex: Female

DRUGS (1)
  1. VIOXX [Suspect]
     Indication: BACK PAIN
     Route: 048
     Dates: start: 20001020, end: 20010206

REACTIONS (29)
  - ABDOMINAL PAIN UPPER [None]
  - ADVERSE EVENT [None]
  - ARTHRALGIA [None]
  - BREAST DISCHARGE [None]
  - CERVICAL SPASM [None]
  - CHEST PAIN [None]
  - DIARRHOEA [None]
  - DUODENITIS [None]
  - DYSFUNCTIONAL UTERINE BLEEDING [None]
  - GASTRITIS [None]
  - HYPERHIDROSIS [None]
  - HYPERSENSITIVITY [None]
  - HYPERTENSION [None]
  - ILEUS [None]
  - IRON DEFICIENCY ANAEMIA [None]
  - JOINT STIFFNESS [None]
  - MENOMETRORRHAGIA [None]
  - MIGRAINE [None]
  - MUSCLE TWITCHING [None]
  - NECK PAIN [None]
  - PAIN [None]
  - PANIC ATTACK [None]
  - PELVIC INFLAMMATORY DISEASE [None]
  - PERIPHERAL COLDNESS [None]
  - POLYTRAUMATISM [None]
  - RAYNAUD'S PHENOMENON [None]
  - RESTLESS LEGS SYNDROME [None]
  - TINNITUS [None]
  - VAGINITIS [None]
